FAERS Safety Report 8800297 (Version 2)
Quarter: 2015Q2

REPORT INFORMATION
  Report Type: Report from Study
  Country: US (occurrence: US)
  Receive Date: 20120921
  Receipt Date: 20150619
  Transmission Date: 20150821
  Serious: Yes (Death)
  Sender: FDA-Public Use
  Company Number: US-ROCHE-1105520

PATIENT
  Sex: Female

DRUGS (9)
  1. ANZEMET [Concomitant]
     Active Substance: DOLASETRON MESYLATE
     Route: 042
  2. DECADRON [Concomitant]
     Active Substance: DEXAMETHASONE
     Route: 042
  3. AVASTIN [Suspect]
     Active Substance: BEVACIZUMAB
     Indication: BRAIN NEOPLASM MALIGNANT
     Route: 042
     Dates: start: 20080219
  4. BICNU [Concomitant]
     Active Substance: CARMUSTINE
     Route: 042
  5. ALOXI [Concomitant]
     Active Substance: PALONOSETRON HYDROCHLORIDE
     Route: 042
  6. CARBOPLATIN. [Concomitant]
     Active Substance: CARBOPLATIN
     Route: 011
  7. IRINOTECAN [Concomitant]
     Active Substance: IRINOTECAN
     Route: 042
  8. LAMICTAL [Concomitant]
     Active Substance: LAMOTRIGINE
     Route: 048
  9. ETOPOSIDE. [Concomitant]
     Active Substance: ETOPOSIDE
     Route: 048

REACTIONS (8)
  - Feeding disorder [Unknown]
  - Off label use [Unknown]
  - Asthenia [Unknown]
  - Vomiting [Unknown]
  - Headache [Unknown]
  - Balance disorder [Unknown]
  - Death [Fatal]
  - Somnolence [Unknown]
